FAERS Safety Report 23993775 (Version 1)
Quarter: 2024Q2

REPORT INFORMATION
  Report Type: Spontaneous
  Country: RO (occurrence: RO)
  Receive Date: 20240620
  Receipt Date: 20240620
  Transmission Date: 20240716
  Serious: Yes (Other)
  Sender: FDA-Public Use
  Company Number: RO-SUN PHARMACEUTICAL INDUSTRIES LTD-2024RR-451192

PATIENT
  Age: 38 Year
  Sex: Female

DRUGS (9)
  1. CAPECITABINE [Suspect]
     Active Substance: CAPECITABINE
     Indication: Colorectal cancer metastatic
     Dosage: CAPOX
     Route: 065
     Dates: start: 201809
  2. OXALIPLATIN [Suspect]
     Active Substance: OXALIPLATIN
     Indication: Colorectal cancer metastatic
     Dosage: CAPOX
     Route: 065
     Dates: start: 201809
  3. IRINOTECAN [Suspect]
     Active Substance: IRINOTECAN
     Indication: Colorectal cancer metastatic
     Dosage: SECOND-LINE THERAPY, FOLFIRI
     Route: 065
     Dates: start: 201903, end: 202001
  4. IRINOTECAN [Suspect]
     Active Substance: IRINOTECAN
     Dosage: SYSTEMIC THERAPY, FOLFOX
     Dates: start: 2021
  5. IRINOTECAN [Suspect]
     Active Substance: IRINOTECAN
     Dosage: IRINOTECAN-BASED REGIMEN
     Route: 065
  6. LEUCOVORIN CALCIUM [Suspect]
     Active Substance: LEUCOVORIN CALCIUM
     Indication: Colorectal cancer metastatic
     Dosage: SECOND-LINE THERAPY, FOLFIRI
     Route: 065
     Dates: start: 201903, end: 202001
  7. LEUCOVORIN CALCIUM [Suspect]
     Active Substance: LEUCOVORIN CALCIUM
     Dosage: SYSTEMIC THERAPY, FOLFOX
     Dates: start: 2021
  8. FLUOROURACIL [Suspect]
     Active Substance: FLUOROURACIL
     Indication: Chemotherapy
     Dosage: SECOND-LINE THERAPY, FOLFIRI
     Route: 065
     Dates: start: 201903, end: 202001
  9. FLUOROURACIL [Suspect]
     Active Substance: FLUOROURACIL
     Dosage: SYSTEMIC THERAPY, FOLFOX
     Dates: start: 2021

REACTIONS (2)
  - Disease progression [Unknown]
  - Infusion site hypersensitivity [Unknown]

NARRATIVE: CASE EVENT DATE: 20190101
